FAERS Safety Report 6843753-5 (Version None)
Quarter: 2010Q3

REPORT INFORMATION
  Report Type: 
  Country: None (occurrence: None)
  Receive Date: 20100715
  Receipt Date: 20100713
  Transmission Date: 20110219
  Serious: Yes (Other)
  Sender: FDA-Public Use
  Company Number: US-JNJFOC-20100700744

PATIENT
  Sex: Female
  Weight: 72.58 kg

DRUGS (2)
  1. ULTRAM [Suspect]
     Indication: PAIN
     Dosage: AS NEEDED
     Route: 048
  2. TRAMADOL HCL [Suspect]
     Indication: PAIN
     Dosage: AS NEEDED
     Route: 048

REACTIONS (6)
  - GASTROOESOPHAGEAL REFLUX DISEASE [None]
  - HAND FRACTURE [None]
  - JOINT INJURY [None]
  - PAIN [None]
  - ROTATOR CUFF SYNDROME [None]
  - SUICIDAL IDEATION [None]
